FAERS Safety Report 22249476 (Version 1)
Quarter: 2023Q2

REPORT INFORMATION
  Report Type: Spontaneous
  Country: US (occurrence: None)
  Receive Date: 20230424
  Receipt Date: 20230424
  Transmission Date: 20230722
  Serious: Yes (Other)
  Sender: FDA-Public Use
  Company Number: None

PATIENT
  Age: 30 Year
  Sex: 0
  Weight: 66.6 kg

DRUGS (12)
  1. BOTOX [Suspect]
     Active Substance: ONABOTULINUMTOXINA
     Indication: Bladder spasm
     Dosage: OTHER FREQUENCY : ONCE;?
     Route: 030
     Dates: start: 20230411, end: 20230411
  2. ascorbic acid 1000 mg [Concomitant]
  3. bisacodyl suppository 10 mg [Concomitant]
  4. CELECOXIB [Concomitant]
     Active Substance: CELECOXIB
  5. CYCLOBENZAPRINE [Concomitant]
     Active Substance: CYCLOBENZAPRINE
  6. ACETAMINOPHEN\HYDROCODONE [Concomitant]
     Active Substance: ACETAMINOPHEN\HYDROCODONE
  7. IBUPROFEN [Concomitant]
     Active Substance: IBUPROFEN
  8. NITROFURANTOIN [Concomitant]
     Active Substance: NITROFURANTOIN
  9. VITAMINS [Concomitant]
     Active Substance: VITAMINS
  10. Trimix [Concomitant]
  11. BIOTIN [Concomitant]
     Active Substance: BIOTIN
  12. METHOCARBAMOL [Concomitant]
     Active Substance: METHOCARBAMOL

REACTIONS (1)
  - Drug ineffective [None]

NARRATIVE: CASE EVENT DATE: 20230411
